FAERS Safety Report 9357749 (Version 2)
Quarter: 2013Q3

REPORT INFORMATION
  Report Type: Report from Study
  Country: ES (occurrence: ES)
  Receive Date: 20130620
  Receipt Date: 20130718
  Transmission Date: 20140515
  Serious: Yes (Hospitalization)
  Sender: FDA-Public Use
  Company Number: ES-ABBOTT-13P-144-1103341-00

PATIENT
  Age: 52 Year
  Sex: Male
  Weight: 76 kg

DRUGS (2)
  1. HUMIRA [Suspect]
     Indication: CROHN^S DISEASE
     Dosage: 160 MG (BASELINE)/80 MG (WEEK 2)
     Route: 058
     Dates: start: 20080131, end: 20130603
  2. MERCAPTOPURINE [Concomitant]
     Indication: CROHN^S DISEASE
     Dates: start: 19961110

REACTIONS (1)
  - Gastroenteritis [Recovered/Resolved]
